FAERS Safety Report 22335522 (Version 2)
Quarter: 2023Q2

REPORT INFORMATION
  Report Type: Spontaneous
  Country: IN (occurrence: IN)
  Receive Date: 20230518
  Receipt Date: 20230530
  Transmission Date: 20230722
  Serious: Yes (Other)
  Sender: FDA-Public Use
  Company Number: IN-MACLEODS PHARMA EU LTD-MAC2023041319

PATIENT

DRUGS (4)
  1. PYRAZINAMIDE [Suspect]
     Active Substance: PYRAZINAMIDE
     Indication: Pulmonary tuberculosis
     Dosage: 750 MILLIGRAM, QD (START DATE: 2003)
     Route: 048
  2. ETHAMBUTOL [Suspect]
     Active Substance: ETHAMBUTOL HYDROCHLORIDE
     Indication: Pulmonary tuberculosis
     Dosage: 800 MILLIGRAM, QD  (START DATE: 2003)
     Route: 048
  3. ISONIAZID [Suspect]
     Active Substance: ISONIAZID
     Indication: Pulmonary tuberculosis
     Dosage: 300 MILLIGRAM, QD  (START DATE: 2003)
     Route: 048
  4. RIFAMPIN [Suspect]
     Active Substance: RIFAMPIN
     Indication: Pulmonary tuberculosis
     Dosage: 450 MILLIGRAM, QD (START DATE: 2003)
     Route: 048

REACTIONS (8)
  - Drug abuse [Unknown]
  - Delusional disorder, somatic type [Unknown]
  - Tremor [Unknown]
  - Sleep disorder [Unknown]
  - Disturbance in attention [Unknown]
  - Paraesthesia [Unknown]
  - Hypoaesthesia [Unknown]
  - Off label use [Unknown]
